FAERS Safety Report 19501649 (Version 1)
Quarter: 2021Q3

REPORT INFORMATION
  Report Type: Spontaneous
  Country: US (occurrence: US)
  Receive Date: 20210702
  Receipt Date: 20210702
  Transmission Date: 20211014
  Serious: Yes (Life-Threatening, Hospitalization, Disabling, Other)
  Sender: FDA-Public Use
  Company Number: None

PATIENT
  Age: 77 Year
  Sex: Male
  Weight: 68.04 kg

DRUGS (9)
  1. CLOPIDOGREL [Concomitant]
     Active Substance: CLOPIDOGREL BISULFATE
  2. VIT D [Concomitant]
     Active Substance: VITAMIN D NOS
  3. ELIQUIS [Suspect]
     Active Substance: APIXABAN
     Indication: VASCULAR SHUNT
  4. ELIQUIS [Suspect]
     Active Substance: APIXABAN
     Indication: DIABETES MELLITUS
  5. BIPAP [Concomitant]
     Active Substance: DEVICE
  6. ELIQUIS [Suspect]
     Active Substance: APIXABAN
     Indication: ATRIAL FIBRILLATION
     Dosage: ?          QUANTITY:1 DF DOSAGE FORM;?
     Route: 048
     Dates: start: 202102
  7. ELIQUIS [Suspect]
     Active Substance: APIXABAN
     Indication: CEREBROVASCULAR ACCIDENT
  8. PANTOPRAZOLE [Concomitant]
     Active Substance: PANTOPRAZOLE
  9. ZOLPIDEM [Concomitant]
     Active Substance: ZOLPIDEM TARTRATE

REACTIONS (5)
  - Haematemesis [None]
  - Transfusion [None]
  - Gastric haemorrhage [None]
  - Spontaneous haemorrhage [None]
  - Immobile [None]

NARRATIVE: CASE EVENT DATE: 20210119
